FAERS Safety Report 8519721-4 (Version None)
Quarter: 2012Q3

REPORT INFORMATION
  Report Type: 
  Country: None (occurrence: None)
  Receive Date: 20120719
  Receipt Date: 20120710
  Transmission Date: 20120928
  Serious: Yes (Death)
  Sender: FDA-Public Use
  Company Number: FR-BIOGENIDEC-2012BI025019

PATIENT
  Age: 42 Year
  Sex: Male

DRUGS (11)
  1. TYSABRI [Suspect]
     Indication: MULTIPLE SCLEROSIS
     Route: 042
     Dates: start: 20070723, end: 20090316
  2. PAROXETINE HCL [Concomitant]
  3. ZYVOX [Concomitant]
     Route: 042
  4. ATROVENT [Concomitant]
  5. TAZOBACTAM [Concomitant]
     Route: 042
  6. VENTOLIN [Concomitant]
  7. NEXIUM [Concomitant]
  8. OXYGEN [Concomitant]
  9. NEURONTIN [Concomitant]
  10. ACETAMINOPHEN [Concomitant]
  11. SODIUM CHLORIDE [Concomitant]
     Route: 042

REACTIONS (1)
  - DEATH [None]
